FAERS Safety Report 19855862 (Version 30)
Quarter: 2023Q1

REPORT INFORMATION
  Report Type: Report from Study
  Country: US (occurrence: None)
  Receive Date: 20210920
  Receipt Date: 20230221
  Transmission Date: 20230418
  Serious: Yes (Hospitalization)
  Sender: FDA-Public Use
  Company Number: US-Eisai Medical Research-EC-2021-099170

PATIENT
  Age: 66 Year
  Sex: Female
  Weight: 69.22 kg

DRUGS (18)
  1. LENVATINIB [Suspect]
     Active Substance: LENVATINIB
     Indication: Clear cell renal cell carcinoma
     Route: 048
     Dates: start: 20210830, end: 20210902
  2. LENVATINIB [Suspect]
     Active Substance: LENVATINIB
     Dosage: STARTING DOSE OF 14MG (FLUCTUATED DOSAGE) DOSE REDUCED.
     Route: 048
     Dates: start: 20210930, end: 20211208
  3. PEMBROLIZUMAB [Suspect]
     Active Substance: PEMBROLIZUMAB
     Indication: Clear cell renal cell carcinoma
     Route: 041
     Dates: start: 20210830, end: 20210830
  4. PEMBROLIZUMAB [Suspect]
     Active Substance: PEMBROLIZUMAB
     Route: 041
     Dates: start: 20211013
  5. BELZUTIFAN [Suspect]
     Active Substance: BELZUTIFAN
     Indication: Clear cell renal cell carcinoma
     Route: 048
     Dates: start: 20210830, end: 20210902
  6. BELZUTIFAN [Suspect]
     Active Substance: BELZUTIFAN
     Dosage: STARTING DOSE AT 80 MG, FLUCTUATED DOSAGE. DOSE REDUCED.
     Route: 048
     Dates: start: 20210930, end: 20211101
  7. EFFEXOR [Concomitant]
     Active Substance: VENLAFAXINE HYDROCHLORIDE
     Dates: start: 201101
  8. CLARITIN [Concomitant]
     Active Substance: LORATADINE
     Dates: start: 202001
  9. PANTOPRAZOLE [Concomitant]
     Active Substance: PANTOPRAZOLE
     Dates: start: 202003
  10. SUCRALFATE [Concomitant]
     Active Substance: SUCRALFATE
     Dates: start: 202003
  11. NITROGLYCERIN [Concomitant]
     Active Substance: NITROGLYCERIN
     Dates: start: 202012
  12. ROBAXIN [Concomitant]
     Active Substance: METHOCARBAMOL
     Dates: start: 202012
  13. ASPIRIN [Concomitant]
     Active Substance: ASPIRIN
     Dates: start: 202012
  14. REPATHA [Concomitant]
     Active Substance: EVOLOCUMAB
     Dates: start: 202012
  15. METOPROLOL SUCCINATE [Concomitant]
     Active Substance: METOPROLOL SUCCINATE
     Dates: start: 202012
  16. RANOLAZINE HYDROCHLORIDE [Concomitant]
     Active Substance: RANOLAZINE HYDROCHLORIDE
     Dates: start: 202012
  17. CLOPIDOGREL [Concomitant]
     Active Substance: CLOPIDOGREL BISULFATE
     Dates: start: 202012
  18. ALDACTONE [Concomitant]
     Active Substance: SPIRONOLACTONE
     Dates: start: 20210412, end: 20211013

REACTIONS (2)
  - Angina pectoris [Recovered/Resolved]
  - Pneumonitis [Recovered/Resolved]

NARRATIVE: CASE EVENT DATE: 20210831
